FAERS Safety Report 8153656-4 (Version None)
Quarter: 2012Q1

REPORT INFORMATION
  Report Type: 
  Country: None (occurrence: None)
  Receive Date: 20120221
  Receipt Date: 20120210
  Transmission Date: 20120608
  Serious: Yes (Other)
  Sender: FDA-Public Use
  Company Number: EC-JNJFOC-20120207451

PATIENT
  Age: 38 Year

DRUGS (1)
  1. REMICADE [Suspect]
     Indication: RHEUMATOID ARTHRITIS
     Dosage: DOSAGE 3
     Route: 042

REACTIONS (5)
  - BRADYCARDIA [None]
  - FEELING ABNORMAL [None]
  - DYSPNOEA [None]
  - ANXIETY [None]
  - CHEST DISCOMFORT [None]
